FAERS Safety Report 6715362-X (Version None)
Quarter: 2010Q2

REPORT INFORMATION
  Report Type: 
  Country: None (occurrence: None)
  Receive Date: 20100507
  Receipt Date: 20100427
  Transmission Date: 20101027
  Serious: Yes (Hospitalization)
  Sender: FDA-Public Use
  Company Number: FR-SANOFI-AVENTIS-2010SA024143

PATIENT
  Age: 66 Year
  Sex: Male

DRUGS (9)
  1. ZOLPIDEM [Suspect]
     Route: 048
     Dates: start: 20100222, end: 20100316
  2. FLAGYL [Suspect]
     Indication: TOOTH INFECTION
     Route: 048
     Dates: start: 20100204, end: 20100401
  3. ROCEPHIN [Suspect]
     Indication: ENDOCARDITIS
     Route: 042
     Dates: start: 20100309, end: 20100402
  4. CONTRAMAL [Suspect]
     Route: 048
     Dates: start: 20100309, end: 20100315
  5. XANAX [Suspect]
     Route: 048
     Dates: start: 20100303, end: 20100316
  6. RIVOTRIL [Concomitant]
     Dates: start: 20100209
  7. ESOMEPRAZOLE [Concomitant]
     Dates: start: 20100209
  8. SOLU-MEDROL [Concomitant]
     Dates: start: 20100209
  9. ARAVA [Concomitant]
     Dates: start: 20070101

REACTIONS (1)
  - THROMBOCYTOPENIA [None]
